FAERS Safety Report 4914355-2 (Version None)
Quarter: 2006Q1

REPORT INFORMATION
  Report Type: 
  Country: None (occurrence: None)
  Receive Date: 20060213
  Receipt Date: 20060203
  Transmission Date: 20060701
  Serious: Yes (Other)
  Sender: FDA-Public Use
  Company Number: 2005-11-1859

PATIENT
  Sex: Male

DRUGS (1)
  1. INTRON A (INTERFERON ALFA-2B RECOMBINANT) MULTIDOSE PEN [Suspect]
     Dates: start: 20030101

REACTIONS (1)
  - DERMATITIS EXFOLIATIVE [None]
